FAERS Safety Report 5814727-8 (Version None)
Quarter: 2008Q3

REPORT INFORMATION
  Report Type: 
  Country: None (occurrence: None)
  Receive Date: 20080718
  Receipt Date: 20080124
  Transmission Date: 20090109
  Serious: No
  Sender: FDA-Public Use
  Company Number: US-KINGPHARMUSA00001-K200800142

PATIENT

DRUGS (4)
  1. LEVOXYL [Suspect]
     Dosage: 25 MCG, UNK
     Dates: start: 20071220, end: 20071226
  2. LEVOXYL [Suspect]
     Dosage: 50 MCG, QD
     Dates: start: 20071227, end: 20080119
  3. DIGOXIN [Concomitant]
     Dosage: .25 MG, QD
     Route: 048
     Dates: start: 20070101
  4. TOPROL-XL [Concomitant]
     Indication: HYPERTENSION
     Dosage: 12.5 MG, QD
     Route: 048
     Dates: start: 20070101

REACTIONS (1)
  - HEART RATE IRREGULAR [None]
